FAERS Safety Report 20671624 (Version 3)
Quarter: 2022Q2

REPORT INFORMATION
  Report Type: Report from Study
  Country: US (occurrence: US)
  Receive Date: 20220404
  Receipt Date: 20220527
  Transmission Date: 20220721
  Serious: Yes (Other)
  Sender: FDA-Public Use
  Company Number: US-ABBVIE-22K-163-4300752-00

PATIENT
  Sex: Female

DRUGS (5)
  1. HUMIRA [Suspect]
     Active Substance: ADALIMUMAB
     Indication: Crohn^s disease
     Dosage: CITRATE FREE
     Route: 058
  2. HUMIRA [Suspect]
     Active Substance: ADALIMUMAB
     Dosage: CITRATE FREE
     Route: 058
  3. HUMIRA [Suspect]
     Active Substance: ADALIMUMAB
     Dosage: CITRATE FREE
     Route: 058
  4. PFIZER-BIONTECH COVID-19 VACCINE [Concomitant]
     Active Substance: TOZINAMERAN
     Indication: COVID-19 immunisation
     Dosage: FIRST DOSE
     Route: 030
     Dates: start: 20210412, end: 20210412
  5. PFIZER-BIONTECH COVID-19 VACCINE [Concomitant]
     Active Substance: TOZINAMERAN
     Dosage: SECOND DOSE
     Route: 030
     Dates: start: 20210503, end: 20210503

REACTIONS (13)
  - Polyp [Unknown]
  - Visual impairment [Unknown]
  - Vision blurred [Unknown]
  - Cerebrovascular accident [Unknown]
  - Eyelid disorder [Unknown]
  - Memory impairment [Unknown]
  - Illness [Unknown]
  - Ligament sprain [Unknown]
  - Burning sensation [Unknown]
  - Fall [Unknown]
  - Vomiting [Unknown]
  - Abdominal pain upper [Unknown]
  - Herpes zoster [Unknown]
